FAERS Safety Report 7038021-5 (Version None)
Quarter: 2010Q4

REPORT INFORMATION
  Report Type: 
  Country: None (occurrence: None)
  Receive Date: 20101011
  Receipt Date: 20101001
  Transmission Date: 20110411
  Serious: Yes (Disabling, Other)
  Sender: FDA-Public Use
  Company Number: US-MILLENNIUM PHARMACEUTICALS, INC.-2010-04526

PATIENT
  Sex: Female

DRUGS (6)
  1. VELCADE [Suspect]
     Indication: MULTIPLE MYELOMA
     Dosage: UNK
     Dates: start: 20060701, end: 20070301
  2. VELCADE [Suspect]
     Dosage: 2.4 MG, UNK
     Route: 042
     Dates: start: 20100112, end: 20100406
  3. DECADRON [Concomitant]
     Indication: MULTIPLE MYELOMA
     Dosage: UNK
     Dates: start: 20060701, end: 20070301
  4. DECADRON [Concomitant]
     Dosage: 40 MG, 1/WEEK
     Route: 048
     Dates: start: 20090401
  5. DECADRON [Concomitant]
     Dosage: UNK
     Dates: start: 20100112
  6. DECADRON [Concomitant]
     Dosage: 1 MG/M2, UNK
     Dates: start: 20100302

REACTIONS (2)
  - HERPES ZOSTER [None]
  - RESPIRATORY DISORDER [None]
